FAERS Safety Report 25747423 (Version 1)
Quarter: 2025Q3

REPORT INFORMATION
  Report Type: Report from Study
  Country: US (occurrence: US)
  Receive Date: 20250901
  Receipt Date: 20250901
  Transmission Date: 20251020
  Serious: Yes (Other)
  Sender: ABBVIE
  Company Number: US-ABBVIE-6434532

PATIENT
  Age: 42 Year
  Sex: Female

DRUGS (1)
  1. SKYRIZI [Suspect]
     Active Substance: RISANKIZUMAB-RZAA
     Indication: Psoriatic arthropathy
     Route: 058
     Dates: start: 20231008

REACTIONS (4)
  - Uterine cancer [Unknown]
  - Skin disorder [Recovering/Resolving]
  - Arthralgia [Recovering/Resolving]
  - Neuralgia [Unknown]

NARRATIVE: CASE EVENT DATE: 20250101
